FAERS Safety Report 7623042-1 (Version None)
Quarter: 2011Q3

REPORT INFORMATION
  Report Type: 
  Country: None (occurrence: None)
  Receive Date: 20110720
  Receipt Date: 20110714
  Transmission Date: 20111222
  Serious: Yes (Other)
  Sender: FDA-Public Use
  Company Number: US-B.I. PHARMACEUTICALS,INC./RIDGEFIELD-2011-BP-09783BP

PATIENT
  Sex: Female

DRUGS (7)
  1. HYDROCODONE [Concomitant]
     Dosage: 7.5MG/325MG
  2. LANOXIN [Concomitant]
     Indication: ATRIAL FIBRILLATION
     Dosage: 0.25 MG
  3. POTASSIUM [Concomitant]
  4. LASIX [Concomitant]
     Dosage: 40 MG
  5. WARFARIN SODIUM [Concomitant]
     Dosage: 5 MG
  6. METFORMIN HCL [Concomitant]
     Indication: DIABETES MELLITUS
     Dosage: 2 PER DAY
  7. PRADAXA [Suspect]
     Indication: ATRIAL FIBRILLATION
     Dosage: 300 MG
     Route: 048
     Dates: start: 20110324, end: 20110325

REACTIONS (7)
  - ABDOMINAL PAIN UPPER [None]
  - NON-CARDIAC CHEST PAIN [None]
  - DYSPEPSIA [None]
  - ERUCTATION [None]
  - FEELING ABNORMAL [None]
  - INSOMNIA [None]
  - THROAT TIGHTNESS [None]
